FAERS Safety Report 12635562 (Version 1)
Quarter: 2016Q3

REPORT INFORMATION
  Report Type: Spontaneous
  Country: US (occurrence: US)
  Receive Date: 20160809
  Receipt Date: 20160809
  Transmission Date: 20161109
  Serious: No
  Sender: FDA-Public Use
  Company Number: US-ASTRAZENECA-2016SE82395

PATIENT
  Sex: Female

DRUGS (3)
  1. ALBUTEROL. [Concomitant]
     Active Substance: ALBUTEROL
     Indication: ASTHMA
     Route: 055
  2. COMPOUNDED THYROID MEDICATION NOT SPECIFIED [Concomitant]
     Indication: THYROID DISORDER
     Route: 065
  3. PRILOSEC OTC [Suspect]
     Active Substance: OMEPRAZOLE MAGNESIUM
     Indication: GASTROOESOPHAGEAL REFLUX DISEASE
     Route: 048
     Dates: start: 201607

REACTIONS (8)
  - Hyperchlorhydria [Unknown]
  - Feeling abnormal [Unknown]
  - Diarrhoea [Unknown]
  - Drug intolerance [Unknown]
  - Dyspnoea [Unknown]
  - Dysphagia [Unknown]
  - Malaise [Unknown]
  - Pain [Unknown]
